FAERS Safety Report 15621654 (Version 1)
Quarter: 2018Q4

REPORT INFORMATION
  Report Type: Spontaneous
  Country: US (occurrence: US)
  Receive Date: 20181109
  Receipt Date: 20181109
  Transmission Date: 20190205
  Serious: No
  Sender: FDA-Public Use
  Company Number: None

PATIENT
  Age: 63 Year

DRUGS (1)
  1. MAVYRET [Suspect]
     Active Substance: GLECAPREVIR\PIBRENTASVIR
     Indication: HEPATITIS B
     Dates: start: 20181018

REACTIONS (3)
  - Upper-airway cough syndrome [None]
  - Fatigue [None]
  - Oropharyngeal pain [None]

NARRATIVE: CASE EVENT DATE: 20181108
